FAERS Safety Report 7297631-0 (Version None)
Quarter: 2011Q1

REPORT INFORMATION
  Report Type: 
  Country: None (occurrence: None)
  Receive Date: 20110216
  Receipt Date: 20110208
  Transmission Date: 20110831
  Serious: Yes (Death, Other)
  Sender: FDA-Public Use
  Company Number: JP-AMGEN-JPNCT2010003619

PATIENT
  Age: 69 Year
  Sex: Male
  Weight: 38 kg

DRUGS (14)
  1. BETAMETHASONE [Concomitant]
     Route: 048
  2. PANITUMUMAB [Suspect]
     Indication: COLORECTAL CANCER METASTATIC
     Dosage: 6 MG/KG, Q2WK
     Route: 041
     Dates: start: 20101008, end: 20101022
  3. FLURBIPROFEN [Concomitant]
     Route: 041
     Dates: start: 20101027, end: 20101027
  4. OXYCONTIN [Concomitant]
     Dosage: UNK UNK, 2 TIMES/WK
     Route: 048
  5. OXINORM [Concomitant]
     Indication: PAIN
     Route: 048
  6. SUNRYTHM [Concomitant]
     Route: 048
  7. MEROPEN                            /01250501/ [Concomitant]
     Route: 041
     Dates: start: 20101029
  8. PYDOXAL [Concomitant]
     Route: 048
  9. PACETCOOL [Concomitant]
     Route: 041
     Dates: start: 20101027, end: 20101029
  10. GASLON [Concomitant]
     Route: 048
  11. GAMOFA [Concomitant]
     Route: 048
  12. FERROMIA                           /00023516/ [Concomitant]
     Route: 048
  13. MAGMITT [Concomitant]
     Route: 048
  14. HYPEN [Concomitant]
     Route: 048

REACTIONS (2)
  - INTERSTITIAL LUNG DISEASE [None]
  - PYREXIA [None]
